FAERS Safety Report 5296094-4 (Version None)
Quarter: 2007Q2

REPORT INFORMATION
  Report Type: 
  Country: None (occurrence: None)
  Receive Date: 20070406
  Receipt Date: 20070322
  Transmission Date: 20071010
  Serious: Yes (Other)
  Sender: FDA-Public Use
  Company Number: GXKR2007NL02986

PATIENT
  Age: 51 Year
  Sex: Male
  Weight: 78 kg

DRUGS (3)
  1. METOPROLOL SUCCINATE [Suspect]
     Indication: PROPHYLAXIS
     Dosage: 50 MG, QD, ORAL
     Route: 048
     Dates: start: 20050609, end: 20070306
  2. LIPITOR [Suspect]
     Indication: PROPHYLAXIS
     Dosage: 40 MG, QD, ORAL
     Route: 048
     Dates: start: 20050609, end: 20061109
  3. SIMVASTATIN [Concomitant]

REACTIONS (5)
  - ABDOMINAL DISTENSION [None]
  - DEPRESSION [None]
  - FATIGUE [None]
  - INSOMNIA [None]
  - PARAESTHESIA [None]
